FAERS Safety Report 4911184-0 (Version None)
Quarter: 2006Q1

REPORT INFORMATION
  Report Type: 
  Country: None (occurrence: None)
  Receive Date: 20060209
  Receipt Date: 20060125
  Transmission Date: 20060701
  Serious: No
  Sender: FDA-Public Use
  Company Number: GB200601004371

PATIENT
  Age: 16 Year
  Sex: Female

DRUGS (1)
  1. ZYPREXA [Suspect]

REACTIONS (4)
  - ANDROGENS INCREASED [None]
  - BLOOD PROLACTIN INCREASED [None]
  - PLATELET COUNT DECREASED [None]
  - SEX HORMONE BINDING GLOBULIN DECREASED [None]
